FAERS Safety Report 4808236-2 (Version None)
Quarter: 2005Q4

REPORT INFORMATION
  Report Type: 
  Country: None (occurrence: None)
  Receive Date: 20051021
  Receipt Date: 20051005
  Transmission Date: 20060501
  Serious: Yes (Death)
  Sender: FDA-Public Use
  Company Number: 12673

PATIENT
  Age: 15 Month
  Sex: Male

DRUGS (4)
  1. VINCRISTINE [Suspect]
     Indication: ACUTE LYMPHOCYTIC LEUKAEMIA
     Dosage: 0.7 MG ONCE IT
     Route: 037
  2. METHOTREXATE [Concomitant]
  3. HYDROCORTISONE [Concomitant]
  4. CYTOSINE ARABINOSIDE [Concomitant]

REACTIONS (27)
  - ABDOMINAL DISTENSION [None]
  - AREFLEXIA [None]
  - ASTHENIA [None]
  - BRAIN DEATH [None]
  - COMA [None]
  - CONFUSIONAL STATE [None]
  - DIPLEGIA [None]
  - DRUG ADMINISTRATION ERROR [None]
  - DYSPHAGIA [None]
  - ENCEPHALOPATHY [None]
  - GENERAL PHYSICAL HEALTH DETERIORATION [None]
  - HYPOTONIA [None]
  - ILEUS PARALYTIC [None]
  - INCORRECT ROUTE OF DRUG ADMINISTRATION [None]
  - IRRITABILITY [None]
  - NUCHAL RIGIDITY [None]
  - NYSTAGMUS [None]
  - OPISTHOTONUS [None]
  - PAIN IN EXTREMITY [None]
  - PUNCTURE SITE REACTION [None]
  - PUPILS UNEQUAL [None]
  - PYREXIA [None]
  - RESPIRATORY ARREST [None]
  - RESPIRATORY PARALYSIS [None]
  - SOMNOLENCE [None]
  - SWELLING [None]
  - URINARY RETENTION [None]
